FAERS Safety Report 5861009-4 (Version None)
Quarter: 2008Q3

REPORT INFORMATION
  Report Type: 
  Country: None (occurrence: None)
  Receive Date: 20080827
  Receipt Date: 20080819
  Transmission Date: 20090109
  Serious: Yes (Hospitalization)
  Sender: FDA-Public Use
  Company Number: BR-ABBOTT-08P-020-0471724-00

PATIENT
  Sex: Male
  Weight: 56 kg

DRUGS (10)
  1. AKINETON [Suspect]
     Indication: PARKINSON'S DISEASE
     Route: 048
     Dates: start: 19980101, end: 20080814
  2. AKINETON [Suspect]
  3. AMANTADINE HCL [Concomitant]
     Indication: PARKINSON'S DISEASE
     Route: 048
  4. MEMANTINE HCL [Concomitant]
     Indication: PARKINSON'S DISEASE
     Route: 048
  5. MEMANTINE HCL [Concomitant]
     Indication: MUSCLE RELAXANT THERAPY
  6. VASERETIC [Concomitant]
     Indication: HYPERTENSION
     Dosage: FORM: 20/12.5 MILLIGRAMS
     Route: 048
  7. MADOPAR [Concomitant]
     Indication: DRUG USE FOR UNKNOWN INDICATION
  8. BACLOFEN [Concomitant]
     Indication: PARKINSON'S DISEASE
     Dates: start: 20080814
  9. CAPTOPRIL [Concomitant]
     Indication: BLOOD PRESSURE MANAGEMENT
  10. LEVODOPA [Concomitant]
     Indication: DRUG USE FOR UNKNOWN INDICATION

REACTIONS (3)
  - DYSPHAGIA [None]
  - NUCHAL RIGIDITY [None]
  - PARALYSIS [None]
